FAERS Safety Report 7328064-6 (Version None)
Quarter: 2011Q1

REPORT INFORMATION
  Report Type: 
  Country: None (occurrence: None)
  Receive Date: 20110222
  Receipt Date: 20110207
  Transmission Date: 20110831
  Serious: Yes (Death)
  Sender: FDA-Public Use
  Company Number: AE 2011-045

PATIENT
  Age: 94 Year
  Sex: Female

DRUGS (1)
  1. FAZACLO ODT [Suspect]
     Dosage: 25 MG DAILY PO
     Route: 048
     Dates: start: 20080613, end: 20101110

REACTIONS (1)
  - DEATH [None]
